FAERS Safety Report 5145863-X (Version None)
Quarter: 2006Q4

REPORT INFORMATION
  Report Type: 
  Country: None (occurrence: None)
  Receive Date: 20061108
  Receipt Date: 20060615
  Transmission Date: 20070319
  Serious: Yes (Death)
  Sender: FDA-Public Use
  Company Number: GBWYE732815JUN06

PATIENT
  Sex: Female

DRUGS (12)
  1. ENBREL [Suspect]
     Indication: RHEUMATOID ARTHRITIS
     Route: 058
     Dates: start: 20060216
  2. WARFARIN SODIUM [Concomitant]
     Dosage: 2MG/2.5MG ALL DAYS
  3. RALOXIFENE HCL [Concomitant]
     Indication: BONE DISORDER
     Dosage: 60MG
     Route: 048
     Dates: start: 20030101
  4. LERCANIDIPINE [Concomitant]
     Indication: HYPERTENSION
     Route: 048
     Dates: start: 20060101
  5. UNSPECIFIED HORMONE REPLACEMENT THERAPY AGENT [Concomitant]
  6. PREDNISOLONE [Concomitant]
  7. BENDROFLUMETHIAZIDE [Concomitant]
  8. CALCIUM [Concomitant]
  9. VITAMINS [Concomitant]
  10. NAPROXEN [Concomitant]
  11. INFLIXIMAB [Concomitant]
     Dosage: 3MG/NIGHTLY
     Dates: start: 20030513, end: 20051121
  12. ATENOLOL [Concomitant]
     Indication: HYPERTENSION

REACTIONS (1)
  - MALIGNANT RESPIRATORY TRACT NEOPLASM [None]
